FAERS Safety Report 4315596-8 (Version None)
Quarter: 2004Q1

REPORT INFORMATION
  Report Type: 
  Country: None (occurrence: None)
  Receive Date: 20040309
  Receipt Date: 20040220
  Transmission Date: 20041129
  Serious: Yes (Hospitalization, Disabling)
  Sender: FDA-Public Use
  Company Number: US_0402100659

PATIENT
  Age: 46 Year
  Sex: Female
  Weight: 55 kg

DRUGS (6)
  1. XIGRIS [Suspect]
     Indication: SEPSIS
     Dosage: 24 UG/KG/HR
     Dates: start: 20040116, end: 20040117
  2. NOREPINEPHRINE [Concomitant]
  3. DOPAMINE HCL [Concomitant]
  4. VANCOMYCIN HYDROCHLORIDE [Concomitant]
  5. TEQUIN (GATIFOXACIN) [Concomitant]
  6. ZOSYN [Concomitant]

REACTIONS (3)
  - ASTHENIA [None]
  - HAEMORRHAGIC CEREBRAL INFARCTION [None]
  - PLATELET COUNT DECREASED [None]
